FAERS Safety Report 26092070 (Version 1)
Quarter: 2025Q4

REPORT INFORMATION
  Report Type: Spontaneous
  Country: US (occurrence: None)
  Receive Date: 20251126
  Receipt Date: 20251126
  Transmission Date: 20260119
  Serious: No
  Sender: AMERICAN REGENT
  Company Number: US-AMERICAN REGENT INC-2025002718

PATIENT
  Sex: Female

DRUGS (5)
  1. VENOFER [Suspect]
     Active Substance: IRON SUCROSE
     Indication: Anaemia
     Dosage: 200 MILLIGRAM
     Route: 040
     Dates: start: 20250701, end: 20250701
  2. VENOFER [Suspect]
     Active Substance: IRON SUCROSE
     Indication: Blood iron decreased
     Dosage: 200 MILLIGRAM
     Route: 040
     Dates: start: 20250708, end: 20250708
  3. VENOFER [Suspect]
     Active Substance: IRON SUCROSE
     Dosage: 200 MILLIGRAM
     Route: 040
     Dates: start: 20250624, end: 20250624
  4. VENOFER [Suspect]
     Active Substance: IRON SUCROSE
     Dosage: 200 MILLIGRAM DILUTED IN 50 ML OF 0.9% NACL
     Route: 040
     Dates: start: 20250715, end: 20250715
  5. VENOFER [Suspect]
     Active Substance: IRON SUCROSE
     Dosage: 200 MILLIGRAM DILUTED IN 50 ML OF 0.9% NACL

REACTIONS (3)
  - Infusion site discomfort [Recovered/Resolved]
  - Off label use [Unknown]
  - Incorrect product administration duration [Unknown]

NARRATIVE: CASE EVENT DATE: 20250101
